FAERS Safety Report 8285313-8 (Version None)
Quarter: 2012Q2

REPORT INFORMATION
  Report Type: 
  Country: None (occurrence: None)
  Receive Date: 20120413
  Receipt Date: 20111108
  Transmission Date: 20120825
  Serious: No
  Sender: FDA-Public Use
  Company Number: US-ASTRAZENECA-2011SE58579

PATIENT
  Age: 49 Year
  Sex: Female
  Weight: 83.9 kg

DRUGS (12)
  1. XANAX [Concomitant]
     Indication: INSOMNIA
  2. MULTI-VITAMINS [Concomitant]
  3. FOMAS [Concomitant]
     Indication: MUSCLE RELAXANT THERAPY
  4. REQUIP [Concomitant]
     Indication: SLEEP DISORDER
  5. ELAVIL [Concomitant]
     Indication: DEPRESSION
  6. OXYCODONE HCL [Concomitant]
     Indication: PAIN
  7. XANAX [Concomitant]
     Indication: ANXIETY
  8. NEXIUM [Suspect]
     Indication: GASTROOESOPHAGEAL REFLUX DISEASE
     Route: 048
     Dates: start: 20040101
  9. VITAMIN B-12 [Concomitant]
  10. LYRICA [Concomitant]
     Indication: FIBROMYALGIA
  11. PRISTIQ [Concomitant]
     Indication: ANXIETY
  12. KLONOPIN [Concomitant]
     Indication: ANXIETY

REACTIONS (1)
  - GASTRIC POLYPS [None]
